FAERS Safety Report 5501640-9 (Version None)
Quarter: 2007Q4

REPORT INFORMATION
  Report Type: 
  Country: None (occurrence: None)
  Receive Date: 20071030
  Receipt Date: 20071018
  Transmission Date: 20080405
  Serious: Yes (Hospitalization, Other)
  Sender: FDA-Public Use
  Company Number: US-ELI_LILLY_AND_COMPANY-US200710004530

PATIENT
  Sex: Female

DRUGS (15)
  1. FORTEO [Suspect]
     Indication: OSTEOPOROSIS
     Dates: start: 20061001
  2. ATENOLOL [Concomitant]
  3. NORVASC [Concomitant]
  4. LANOXIN [Concomitant]
     Indication: CARDIAC DISORDER
  5. LASIX [Concomitant]
     Indication: CARDIAC FAILURE CONGESTIVE
  6. LIPITOR [Concomitant]
  7. COUMADIN [Concomitant]
  8. ALTACE [Concomitant]
  9. SYNTHROID [Concomitant]
     Indication: HYPOTHYROIDISM
  10. MAGNESIUM OXIDE [Concomitant]
  11. ZOLOFT [Concomitant]
     Indication: DEPRESSION
  12. LEXAPRO [Concomitant]
     Indication: DEPRESSION
  13. METFORMIN HCL [Concomitant]
     Indication: DIABETES MELLITUS
  14. MEGACE [Concomitant]
     Indication: APPETITE DISORDER
  15. GLYNASE [Concomitant]
     Indication: DIABETES MELLITUS

REACTIONS (7)
  - ASTHENIA [None]
  - BLADDER DISTENSION [None]
  - CARDIAC FAILURE CONGESTIVE [None]
  - FALL [None]
  - HYPOTHYROIDISM [None]
  - PULMONARY OEDEMA [None]
  - WHITE BLOOD CELL COUNT INCREASED [None]
